FAERS Safety Report 9128096 (Version 1)
Quarter: 2013Q1

REPORT INFORMATION
  Report Type: Spontaneous
  Country: DE (occurrence: DE)
  Receive Date: 20130125
  Receipt Date: 20130125
  Transmission Date: 20140127
  Serious: Yes (Life-Threatening, Hospitalization)
  Sender: FDA-Public Use
  Company Number: DE-TEVA-380356GER

PATIENT
  Age: 76 Year
  Sex: Male
  Weight: 90 kg

DRUGS (4)
  1. CEFUROXIME [Suspect]
     Dosage: A TOTAL OF 40 TABLETS WERE USED
     Route: 048
  2. MIRTAZAPINE [Suspect]
     Indication: DEPRESSION
     Route: 048
     Dates: start: 2004, end: 20120810
  3. IBUFLAM [Suspect]
     Indication: ARTHRALGIA
     Route: 048
  4. MARCUMAR [Concomitant]
     Indication: THROMBOSIS
     Dates: start: 1989

REACTIONS (1)
  - Bone marrow failure [Not Recovered/Not Resolved]
